FAERS Safety Report 16646907 (Version 1)
Quarter: 2019Q3

REPORT INFORMATION
  Report Type: Spontaneous
  Country: FR (occurrence: FR)
  Receive Date: 20190730
  Receipt Date: 20190730
  Transmission Date: 20191004
  Serious: Yes (Hospitalization)
  Sender: FDA-Public Use
  Company Number: FR-PFIZER INC-2019319747

PATIENT
  Age: 11 Year
  Sex: Female

DRUGS (3)
  1. VOGALENE [Suspect]
     Active Substance: METOPIMAZINE
     Dosage: UNK
  2. ADVIL [Suspect]
     Active Substance: IBUPROFEN
     Dosage: UNK
  3. PARACETAMOL [Suspect]
     Active Substance: ACETAMINOPHEN
     Dosage: UNK

REACTIONS (3)
  - Drug level increased [Unknown]
  - Cognitive disorder [Unknown]
  - Headache [Unknown]

NARRATIVE: CASE EVENT DATE: 20190707
